FAERS Safety Report 5644939-8 (Version None)
Quarter: 2008Q1

REPORT INFORMATION
  Report Type: 
  Country: None (occurrence: None)
  Receive Date: 20080229
  Receipt Date: 20071101
  Transmission Date: 20080703
  Serious: No
  Sender: FDA-Public Use
  Company Number: A0692322A

PATIENT
  Age: 43 Year
  Sex: Female

DRUGS (3)
  1. VALTREX [Suspect]
     Indication: DRUG USE FOR UNKNOWN INDICATION
     Route: 065
     Dates: end: 20070502
  2. IMITREX [Suspect]
     Indication: DRUG USE FOR UNKNOWN INDICATION
     Route: 065
     Dates: end: 20070502
  3. DENAVIR [Suspect]
     Indication: ORAL HERPES
     Route: 061
     Dates: start: 20070424

REACTIONS (4)
  - DRUG INTERACTION [None]
  - HYPOAESTHESIA FACIAL [None]
  - HYPOAESTHESIA ORAL [None]
  - TOOTHACHE [None]
